FAERS Safety Report 4749861-7 (Version None)
Quarter: 2005Q3

REPORT INFORMATION
  Report Type: 
  Country: None (occurrence: None)
  Receive Date: 20050822
  Receipt Date: 20050818
  Transmission Date: 20060218
  Serious: Yes (Other)
  Sender: FDA-Public Use
  Company Number: PHBS2005JP12046

PATIENT
  Age: 76 Year
  Sex: Female

DRUGS (2)
  1. CLOMIPRAMINE HCL [Suspect]
     Route: 065
  2. METHYLPHENIDATE HCL [Suspect]
     Route: 065

REACTIONS (1)
  - SEROTONIN SYNDROME [None]
